FAERS Safety Report 9205990 (Version 1)
Quarter: 2013Q1

REPORT INFORMATION
  Report Type: Spontaneous
  Country: US (occurrence: None)
  Receive Date: 20120731
  Receipt Date: 20120731
  Transmission Date: 20140127
  Serious: Yes (Other)
  Sender: FDA-Public Use
  Company Number: PHHY2011US39140

PATIENT
  Age: 78 Year
  Sex: Female
  Weight: 50.8 kg

DRUGS (1)
  1. FORADIL [Suspect]
     Indication: CHRONIC OBSTRUCTIVE PULMONARY DISEASE
     Route: 055
     Dates: start: 20040303

REACTIONS (3)
  - Bronchospasm [None]
  - Product quality issue [None]
  - Cough [None]
